FAERS Safety Report 24062523 (Version 1)
Quarter: 2024Q3

REPORT INFORMATION
  Report Type: Spontaneous
  Country: AU (occurrence: AU)
  Receive Date: 20240708
  Receipt Date: 20240708
  Transmission Date: 20241017
  Serious: Yes (Life-Threatening, Other)
  Sender: SANDOZ
  Company Number: AU-SANDOZ-SDZ2024AU063303

PATIENT
  Sex: Female

DRUGS (4)
  1. CYTARABINE [Suspect]
     Active Substance: CYTARABINE
     Indication: Central nervous system lymphoma
     Dosage: UNK
     Route: 065
     Dates: start: 202211, end: 202304
  2. METHOTREXATE [Suspect]
     Active Substance: METHOTREXATE
     Indication: Central nervous system lymphoma
     Dosage: UNK
     Route: 065
     Dates: start: 202211, end: 202304
  3. RITUXIMAB [Suspect]
     Active Substance: RITUXIMAB
     Indication: Central nervous system lymphoma
     Dosage: UNK
     Route: 065
     Dates: start: 202211, end: 202304
  4. THIOTEPA [Suspect]
     Active Substance: THIOTEPA
     Indication: Central nervous system lymphoma
     Dosage: UNK
     Route: 065
     Dates: start: 202211, end: 202304

REACTIONS (2)
  - Sepsis [Unknown]
  - Near death experience [Unknown]
